FAERS Safety Report 5950501-X (Version None)
Quarter: 2008Q4

REPORT INFORMATION
  Report Type: 
  Country: None (occurrence: None)
  Receive Date: 20081022
  Receipt Date: 20080626
  Transmission Date: 20090506
  Serious: No
  Sender: FDA-Public Use
  Company Number: SPV1-2008-01410

PATIENT
  Age: 55 Year
  Sex: Female
  Weight: 68.9 kg

DRUGS (9)
  1. VYVANSE [Suspect]
     Indication: ATTENTION DEFICIT/HYPERACTIVITY DISORDER
     Dosage: 30 MG, 1X/DAY:QD, ORAL ; 50 MG, 1X/DAY:QD, ORAL ; 30 MG, 1X/DAY:QD, ORAL ; 60 MG,1X/DAY:QD, ORAL
     Route: 048
     Dates: start: 20071201, end: 20071201
  2. VYVANSE [Suspect]
     Indication: ATTENTION DEFICIT/HYPERACTIVITY DISORDER
     Dosage: 30 MG, 1X/DAY:QD, ORAL ; 50 MG, 1X/DAY:QD, ORAL ; 30 MG, 1X/DAY:QD, ORAL ; 60 MG,1X/DAY:QD, ORAL
     Route: 048
     Dates: start: 20071201, end: 20080101
  3. VYVANSE [Suspect]
     Indication: ATTENTION DEFICIT/HYPERACTIVITY DISORDER
     Dosage: 30 MG, 1X/DAY:QD, ORAL ; 50 MG, 1X/DAY:QD, ORAL ; 30 MG, 1X/DAY:QD, ORAL ; 60 MG,1X/DAY:QD, ORAL
     Route: 048
     Dates: start: 20080101, end: 20080201
  4. VYVANSE [Suspect]
     Indication: ATTENTION DEFICIT/HYPERACTIVITY DISORDER
     Dosage: 30 MG, 1X/DAY:QD, ORAL ; 50 MG, 1X/DAY:QD, ORAL ; 30 MG, 1X/DAY:QD, ORAL ; 60 MG,1X/DAY:QD, ORAL
     Route: 048
     Dates: start: 20080201
  5. ADDERALL XR (AMFETAMINE ASPARTATE, AMFETAMINE SULFATE, DEXAMFETAMINE S [Concomitant]
  6. SYNTHROID [Concomitant]
  7. LIPITOR [Concomitant]
  8. ESTRADIOL [Concomitant]
  9. CYMBALTA [Concomitant]

REACTIONS (6)
  - AFFECT LABILITY [None]
  - ANXIETY [None]
  - DRY MOUTH [None]
  - DYSPNOEA [None]
  - MADAROSIS [None]
  - PALPITATIONS [None]
